FAERS Safety Report 6039605-3 (Version None)
Quarter: 2009Q1

REPORT INFORMATION
  Report Type: 
  Country: None (occurrence: None)
  Receive Date: 20090116
  Receipt Date: 20090106
  Transmission Date: 20090719
  Serious: Yes (Other)
  Sender: FDA-Public Use
  Company Number: US-BRISTOL-MYERS SQUIBB COMPANY-14465322

PATIENT

DRUGS (1)
  1. ORENCIA [Suspect]

REACTIONS (1)
  - CROHN'S DISEASE [None]
